FAERS Safety Report 9330892 (Version 1)
Quarter: 2013Q2

REPORT INFORMATION
  Report Type: Spontaneous
  Country: US (occurrence: None)
  Receive Date: 20130604
  Receipt Date: 20130604
  Transmission Date: 20140414
  Serious: Yes (Other)
  Sender: FDA-Public Use
  Company Number: None

PATIENT
  Age: 15 Year
  Sex: Male
  Weight: 72.5 kg

DRUGS (1)
  1. KEPPRA [Suspect]
     Indication: CONVULSION
     Dosage: 180 TABS 3TABS BID
     Route: 048
     Dates: start: 201111

REACTIONS (1)
  - Convulsion [None]
